FAERS Safety Report 4527033-9 (Version None)
Quarter: 2004Q4

REPORT INFORMATION
  Report Type: 
  Country: None (occurrence: None)
  Receive Date: 20041214
  Receipt Date: 20041207
  Transmission Date: 20050328
  Serious: Yes (Death, Life-Threatening, Hospitalization)
  Sender: FDA-Public Use
  Company Number: SI-MERCK-0412HUN00006

PATIENT
  Age: 73 Year
  Sex: Male
  Weight: 80 kg

DRUGS (4)
  1. CANCIDAS [Suspect]
     Route: 041
     Dates: start: 20040505, end: 20040514
  2. PIPERACILLIN SODIUM AND TAZOBACTAM SODIUM [Concomitant]
     Indication: PNEUMONIA
     Route: 065
     Dates: start: 20040430, end: 20040514
  3. FUROSEMIDE [Concomitant]
     Route: 065
  4. AMIODARONE [Concomitant]
     Indication: ARRHYTHMIA
     Route: 048

REACTIONS (1)
  - SHOCK [None]
